FAERS Safety Report 14529046 (Version 1)
Quarter: 2018Q1

REPORT INFORMATION
  Report Type: Spontaneous
  Country: US (occurrence: US)
  Receive Date: 20180214
  Receipt Date: 20180214
  Transmission Date: 20180509
  Serious: No
  Sender: FDA-Public Use
  Company Number: US-PFIZER INC-2018064039

PATIENT
  Age: 55 Year
  Sex: Female
  Weight: 71.2 kg

DRUGS (1)
  1. ZOLOFT [Suspect]
     Active Substance: SERTRALINE HYDROCHLORIDE
     Indication: HOT FLUSH
     Dosage: 50 MG, DAILY
     Route: 048
     Dates: start: 2014

REACTIONS (1)
  - Drug ineffective for unapproved indication [Unknown]
